FAERS Safety Report 5441655-2 (Version None)
Quarter: 2007Q3

REPORT INFORMATION
  Report Type: 
  Country: None (occurrence: None)
  Receive Date: 20070904
  Receipt Date: 20070822
  Transmission Date: 20080115
  Serious: Yes (Other)
  Sender: FDA-Public Use
  Company Number: GB-BAYER-200710899BNE

PATIENT
  Age: 67 Year
  Sex: Male

DRUGS (6)
  1. CIPROFLOXACIN [Suspect]
     Route: 048
     Dates: start: 20070622, end: 20070622
  2. DIGOXIN [Concomitant]
  3. FYBOGEL [Concomitant]
  4. MEBEVERINE [Concomitant]
  5. MOMETASONE FUROATE [Concomitant]
     Route: 045
  6. WARFARIN SODIUM [Concomitant]

REACTIONS (3)
  - DYSKINESIA [None]
  - PRESYNCOPE [None]
  - VISUAL DISTURBANCE [None]
